FAERS Safety Report 13681867 (Version 2)
Quarter: 2017Q3

REPORT INFORMATION
  Report Type: Report from Study
  Country: US (occurrence: US)
  Receive Date: 20170623
  Receipt Date: 20170830
  Transmission Date: 20171127
  Serious: Yes (Hospitalization, Other)
  Sender: FDA-Public Use
  Company Number: PHEH2017US018802

PATIENT
  Sex: Female

DRUGS (1)
  1. GLEEVEC [Suspect]
     Active Substance: IMATINIB MESYLATE
     Indication: CHRONIC MYELOID LEUKAEMIA
     Dosage: 400 MG, QD
     Route: 048

REACTIONS (11)
  - Pyrexia [Recovering/Resolving]
  - Abdominal discomfort [Recovering/Resolving]
  - Liver disorder [Recovering/Resolving]
  - Biliary cirrhosis primary [Unknown]
  - Fall [Unknown]
  - Infection [Recovering/Resolving]
  - Blood pressure decreased [Recovering/Resolving]
  - Haematoma [Not Recovered/Not Resolved]
  - Contusion [Recovering/Resolving]
  - Wound [Not Recovered/Not Resolved]
  - Impaired healing [Unknown]
